FAERS Safety Report 13677975 (Version 1)
Quarter: 2017Q2

REPORT INFORMATION
  Report Type: Spontaneous
  Country: US (occurrence: US)
  Receive Date: 20170622
  Receipt Date: 20170622
  Transmission Date: 20170830
  Serious: Yes (Other)
  Sender: FDA-Public Use
  Company Number: US-BRISTOL-MYERS SQUIBB COMPANY-BMS-2017-054448

PATIENT
  Age: 85 Year
  Sex: Male

DRUGS (1)
  1. METFORMIN HYDROCHLORIDE. [Suspect]
     Active Substance: METFORMIN HYDROCHLORIDE
     Indication: TYPE 2 DIABETES MELLITUS
     Route: 065

REACTIONS (6)
  - Glycosylated haemoglobin increased [Unknown]
  - Glomerular filtration rate decreased [Unknown]
  - Diarrhoea [Unknown]
  - Blood glucose increased [Unknown]
  - Localised infection [Unknown]
  - Dehydration [Unknown]
